FAERS Safety Report 5531317-5 (Version None)
Quarter: 2007Q4

REPORT INFORMATION
  Report Type: 
  Country: None (occurrence: None)
  Receive Date: 20071128
  Receipt Date: 20071114
  Transmission Date: 20080405
  Serious: Yes (Other)
  Sender: FDA-Public Use
  Company Number: B0496674A

PATIENT
  Age: 43 Year
  Sex: Male

DRUGS (3)
  1. TRIZIVIR [Suspect]
     Indication: HIV INFECTION
     Dates: start: 20041201
  2. TENOFOVIR (FORMULATION UNKNOWN) (TENOFOVIR) [Suspect]
     Indication: HIV INFECTION
     Dates: start: 20041201
  3. AMOXICILLIN TRIHYDRATE [Concomitant]

REACTIONS (6)
  - HAEMOPTYSIS [None]
  - HYPERREFLEXIA [None]
  - HYPOAESTHESIA [None]
  - IMMUNE RECONSTITUTION SYNDROME [None]
  - MOTOR DYSFUNCTION [None]
  - MUSCULAR WEAKNESS [None]
